FAERS Safety Report 4969128-1 (Version None)
Quarter: 2006Q2

REPORT INFORMATION
  Report Type: 
  Country: None (occurrence: None)
  Receive Date: 20060411
  Receipt Date: 20050411
  Transmission Date: 20061013
  Serious: Yes (Other)
  Sender: FDA-Public Use
  Company Number: US-BRISTOL-MYERS SQUIBB COMPANY-12929600

PATIENT
  Age: 59 Year
  Sex: Female

DRUGS (3)
  1. PARAPLATIN [Suspect]
     Indication: BREAST CANCER METASTATIC
     Dates: start: 20050309, end: 20050309
  2. TAXOL [Concomitant]
     Indication: BREAST CANCER METASTATIC
  3. HERCEPTIN [Concomitant]
     Indication: BREAST CANCER METASTATIC

REACTIONS (1)
  - HYPERSENSITIVITY [None]
